FAERS Safety Report 16312459 (Version 1)
Quarter: 2019Q2

REPORT INFORMATION
  Report Type: Spontaneous
  Country: US (occurrence: US)
  Receive Date: 20190515
  Receipt Date: 20190515
  Transmission Date: 20190711
  Serious: Yes (Hospitalization, Other)
  Sender: FDA-Public Use
  Company Number: US-ZYDUS-036826

PATIENT
  Age: 67 Year
  Sex: Female

DRUGS (2)
  1. NAPROXEN. [Suspect]
     Active Substance: NAPROXEN
     Indication: PAIN IN EXTREMITY
     Route: 065
  2. NAPROXEN. [Suspect]
     Active Substance: NAPROXEN
     Indication: PAIN IN EXTREMITY
     Route: 065

REACTIONS (7)
  - Condition aggravated [Unknown]
  - Purpura [Unknown]
  - Skin exfoliation [Unknown]
  - Papule [Unknown]
  - Necrosis [Unknown]
  - Hypersensitivity vasculitis [Unknown]
  - Peripheral swelling [Unknown]
